FAERS Safety Report 7431980-8 (Version None)
Quarter: 2011Q1

REPORT INFORMATION
  Report Type: 
  Country: None (occurrence: None)
  Receive Date: 20110302
  Receipt Date: 20110119
  Transmission Date: 20110831
  Serious: No
  Sender: FDA-Public Use
  Company Number: 020938

PATIENT
  Sex: Female
  Weight: 71 kg

DRUGS (6)
  1. CIMZIA [Suspect]
     Indication: CROHN'S DISEASE
     Dosage: 400 MG 1X/2 WEEKS SUBCUTANEOUS
     Route: 058
     Dates: start: 20100730
  2. VITAMINS NOS [Concomitant]
  3. IMURAN [Concomitant]
  4. IMITREX [Concomitant]
  5. MERCAPTOPURINE [Suspect]
     Indication: CROHN'S DISEASE
     Dosage: 50 MG ORAL
     Route: 048
     Dates: end: 20100805
  6. LEXAPRO [Concomitant]

REACTIONS (8)
  - PAIN IN EXTREMITY [None]
  - CONSTIPATION [None]
  - WHITE BLOOD CELL COUNT DECREASED [None]
  - ARTHRALGIA [None]
  - MUSCLE SPASMS [None]
  - FATIGUE [None]
  - WEIGHT INCREASED [None]
  - MIGRAINE [None]
